FAERS Safety Report 7966740-2 (Version None)
Quarter: 2011Q4

REPORT INFORMATION
  Report Type: 
  Country: None (occurrence: None)
  Receive Date: 20111209
  Receipt Date: 20111202
  Transmission Date: 20120403
  Serious: No
  Sender: FDA-Public Use
  Company Number: US-BIOGENIDEC-2011BI046135

PATIENT
  Sex: Female

DRUGS (1)
  1. TYSABRI [Suspect]
     Indication: MULTIPLE SCLEROSIS
     Route: 042
     Dates: start: 20071213

REACTIONS (14)
  - DEPRESSION [None]
  - VAGINAL INFECTION [None]
  - PAIN IN EXTREMITY [None]
  - URINARY INCONTINENCE [None]
  - FALL [None]
  - DIZZINESS [None]
  - HEADACHE [None]
  - JOINT EFFUSION [None]
  - FATIGUE [None]
  - COORDINATION ABNORMAL [None]
  - CONSTIPATION [None]
  - URINARY TRACT INFECTION [None]
  - ARTHRITIS [None]
  - ARTHRALGIA [None]
